FAERS Safety Report 16795215 (Version 6)
Quarter: 2020Q4

REPORT INFORMATION
  Report Type: Spontaneous
  Country: US (occurrence: US)
  Receive Date: 20190911
  Receipt Date: 20201019
  Transmission Date: 20210113
  Serious: Yes (Other)
  Sender: FDA-Public Use
  Company Number: US-PFIZER INC-2019390921

PATIENT
  Age: 53 Year
  Sex: Female
  Weight: 92.08 kg

DRUGS (5)
  1. DUAVEE [Suspect]
     Active Substance: BAZEDOXIFENE ACETATE\ESTROGENS, CONJUGATED
     Dosage: 1 DF, 1X/DAY (1 AN DAY AT NIGHT BY MOUTH. 0.45-20 MG PER TABLET)
     Route: 048
     Dates: end: 20200830
  2. CALCIUM [Concomitant]
     Active Substance: CALCIUM
     Dosage: 2 DF, DAILY (2 CALCIUM PILLS A DAY)
  3. DUAVEE [Suspect]
     Active Substance: BAZEDOXIFENE ACETATE\ESTROGENS, CONJUGATED
     Indication: BONE DENSITY ABNORMAL
     Dosage: UNK, ALTERNATE DAY (EVERY OTHER DAY)
  4. DUAVEE [Suspect]
     Active Substance: BAZEDOXIFENE ACETATE\ESTROGENS, CONJUGATED
     Indication: HORMONE THERAPY
     Dosage: 1 DF, 1X/DAY ( 1 TAB ORAL BEFORE BED)
     Route: 048
  5. VITAMIN D3 [Concomitant]
     Active Substance: CHOLECALCIFEROL
     Dosage: (10000 UNITS)

REACTIONS (6)
  - Foot fracture [Unknown]
  - Intentional product misuse [Unknown]
  - Feeling abnormal [Unknown]
  - Facial bones fracture [Unknown]
  - Sluggishness [Not Recovered/Not Resolved]
  - Discomfort [Unknown]

NARRATIVE: CASE EVENT DATE: 20200709
